FAERS Safety Report 20793973 (Version 1)
Quarter: 2022Q2

REPORT INFORMATION
  Report Type: Spontaneous
  Country: GB (occurrence: GB)
  Receive Date: 20220506
  Receipt Date: 20220506
  Transmission Date: 20220721
  Serious: Yes (Life-Threatening, Hospitalization, Other)
  Sender: FDA-Public Use
  Company Number: GB-MHRA-MED-202205041554107910-RJPBU

PATIENT
  Sex: Female

DRUGS (1)
  1. EMPAGLIFLOZIN [Suspect]
     Active Substance: EMPAGLIFLOZIN
     Indication: Diabetes mellitus
     Dates: start: 201901, end: 20220421

REACTIONS (2)
  - Diabetic ketoacidosis [Recovered/Resolved]
  - Pancreatitis [Unknown]

NARRATIVE: CASE EVENT DATE: 20220415
